FAERS Safety Report 5029843-0 (Version None)
Quarter: 2006Q2

REPORT INFORMATION
  Report Type: 
  Country: None (occurrence: None)
  Receive Date: 20060620
  Receipt Date: 20060330
  Transmission Date: 20061013
  Serious: Yes (Other)
  Sender: FDA-Public Use
  Company Number: US-AVENTIS-200613019US

PATIENT
  Sex: Female

DRUGS (9)
  1. KETEK [Suspect]
     Indication: SINUSITIS
     Route: 048
     Dates: start: 20060313, end: 20060318
  2. CELEBREX [Concomitant]
     Dosage: DOSE: UNKNOWN
  3. NEXIUM [Concomitant]
     Dosage: DOSE: UNKNOWN
  4. ALLEGRA [Concomitant]
     Dosage: DOSE: UNKNOWN
  5. ZYRTEC [Concomitant]
     Dosage: DOSE: UNKNOWN
  6. IBUPROFEN [Concomitant]
     Dosage: DOSE: UNKNOWN
  7. PREMARIN [Concomitant]
     Dosage: DOSE: UNKNOWN
  8. SSRI [Concomitant]
     Dosage: DOSE: UNKNOWN
  9. MAXZIDE [Concomitant]
     Dosage: DOSE: UNKNOWN

REACTIONS (22)
  - ALANINE AMINOTRANSFERASE INCREASED [None]
  - ASPARTATE AMINOTRANSFERASE INCREASED [None]
  - BILIRUBIN CONJUGATED INCREASED [None]
  - BLOOD ALKALINE PHOSPHATASE INCREASED [None]
  - BLOOD BILIRUBIN INCREASED [None]
  - BLOOD CHLORIDE DECREASED [None]
  - BLOOD CREATININE DECREASED [None]
  - BLOOD GLUCOSE INCREASED [None]
  - BLOOD SODIUM DECREASED [None]
  - BLOOD UREA DECREASED [None]
  - CHROMATURIA [None]
  - FATIGUE [None]
  - HEADACHE [None]
  - JAUNDICE [None]
  - LYMPHOCYTE COUNT DECREASED [None]
  - MALAISE [None]
  - NAUSEA [None]
  - OCULAR ICTERUS [None]
  - PLATELET COUNT INCREASED [None]
  - PRURITUS [None]
  - PYREXIA [None]
  - RED BLOOD CELL SEDIMENTATION RATE INCREASED [None]
